FAERS Safety Report 21921862 (Version 1)
Quarter: 2023Q1

REPORT INFORMATION
  Report Type: Other
  Country: None (occurrence: PL)
  Receive Date: 20230127
  Receipt Date: 20230127
  Transmission Date: 20230418
  Serious: Yes (Other)
  Sender: FDA-Public Use
  Company Number: PL-B.Braun Medical Inc.-2137202

PATIENT
  Age: 32 Year
  Sex: Female

DRUGS (10)
  1. POTASSIUM CHLORIDE [Suspect]
     Active Substance: POTASSIUM CHLORIDE
  2. ETOMIDATE [Concomitant]
     Active Substance: ETOMIDATE
  3. OSILODROSTAT [Concomitant]
     Active Substance: OSILODROSTAT
  4. DIMETHYL FUMARATE [Concomitant]
     Active Substance: DIMETHYL FUMARATE
  5. LINAGLIPTIN [Concomitant]
     Active Substance: LINAGLIPTIN
  6. EMPAGLIFLOZIN [Concomitant]
     Active Substance: EMPAGLIFLOZIN
  7. QUETIAPINE [Concomitant]
     Active Substance: QUETIAPINE
  8. HYDROXYZINE [Concomitant]
     Active Substance: HYDROXYZINE HYDROCHLORIDE
  9. LORAZEPAM [Concomitant]
     Active Substance: LORAZEPAM
  10. SPIRONOLACTONE [Concomitant]
     Active Substance: SPIRONOLACTONE

REACTIONS (1)
  - Drug ineffective [None]
